FAERS Safety Report 4867565-7 (Version None)
Quarter: 2005Q4

REPORT INFORMATION
  Report Type: 
  Country: None (occurrence: None)
  Receive Date: 20051222
  Receipt Date: 20051213
  Transmission Date: 20060501
  Serious: Yes (Life-Threatening, Hospitalization, Other)
  Sender: FDA-Public Use
  Company Number: HQWYE944010JUL03

PATIENT
  Age: 5 Year
  Sex: Male
  Weight: 16 kg

DRUGS (12)
  1. RAPAMUNE [Suspect]
     Indication: PROPHYLAXIS AGAINST TRANSPLANT REJECTION
     Dosage: SEE IMAGE
     Route: 048
     Dates: start: 20030317, end: 20030601
  2. RAPAMUNE [Suspect]
     Indication: PROPHYLAXIS AGAINST TRANSPLANT REJECTION
     Dosage: SEE IMAGE
     Route: 048
     Dates: start: 20030601, end: 20030705
  3. PREDNISONE [Suspect]
     Indication: PROPHYLAXIS AGAINST TRANSPLANT REJECTION
     Dosage: 2 MG 1X PER 1 DAY, ORAL
     Route: 048
     Dates: start: 20030318
  4. PROGRAF [Suspect]
     Indication: PROPHYLAXIS AGAINST TRANSPLANT REJECTION
     Dosage: SEE IMAGE
     Route: 048
     Dates: start: 20030318, end: 20030601
  5. PROGRAF [Suspect]
     Indication: PROPHYLAXIS AGAINST TRANSPLANT REJECTION
     Dosage: SEE IMAGE
     Route: 048
     Dates: start: 20030601
  6. CYTOVENE [Concomitant]
  7. BACTRIM DS [Concomitant]
  8. NORVASC [Concomitant]
  9. NYSTATIN [Concomitant]
  10. ZANTAC (RANITIDINE HYDROCHLOIRDE) [Concomitant]
  11. URO-MAG (MAGNESIUM OXIDE) [Concomitant]
  12. RHINOCORT [Concomitant]

REACTIONS (6)
  - ANOREXIA [None]
  - B-CELL LYMPHOMA [None]
  - HAEMATOCRIT DECREASED [None]
  - HAEMOGLOBIN DECREASED [None]
  - PLATELET COUNT DECREASED [None]
  - TONSILLAR DISORDER [None]
